FAERS Safety Report 24011253 (Version 1)
Quarter: 2024Q2

REPORT INFORMATION
  Report Type: Spontaneous
  Country: US (occurrence: US)
  Receive Date: 20240625
  Receipt Date: 20240625
  Transmission Date: 20240716
  Serious: No
  Sender: FDA-Public Use
  Company Number: US-PFIZER INC-202400198742

PATIENT
  Sex: Male

DRUGS (1)
  1. ZAVZPRET [Suspect]
     Active Substance: ZAVEGEPANT HYDROCHLORIDE
     Indication: Migraine
     Dosage: 10 MG, AS NEEDED
     Route: 045
     Dates: start: 202406, end: 202406

REACTIONS (2)
  - Nasal discomfort [Recovered/Resolved with Sequelae]
  - Dysgeusia [Recovered/Resolved with Sequelae]

NARRATIVE: CASE EVENT DATE: 20240601
